FAERS Safety Report 8822775 (Version 1)
Quarter: 2012Q4

REPORT INFORMATION
  Report Type: 
  Country: US (occurrence: US)
  Receive Date: 20121003
  Receipt Date: 20121003
  Transmission Date: 20130627
  Serious: Yes (Hospitalization)
  Sender: FDA-Public Use
  Company Number: US-JNJFOC-20120910931

PATIENT
  Age: 72 Year
  Sex: Female

DRUGS (2)
  1. DURAGESIC [Suspect]
     Indication: PAIN
     Route: 062
  2. AN UNKNOWN MEDICATION [Suspect]
     Indication: PRODUCT USED FOR UNKNOWN INDICATION
     Route: 065

REACTIONS (5)
  - Pain [Not Recovered/Not Resolved]
  - Wheelchair user [Not Recovered/Not Resolved]
  - Adverse event [Recovered/Resolved]
  - Dry mouth [Not Recovered/Not Resolved]
  - Product quality issue [Unknown]
